FAERS Safety Report 7979401-0 (Version None)
Quarter: 2011Q4

REPORT INFORMATION
  Report Type: 
  Country: None (occurrence: None)
  Receive Date: 20111214
  Receipt Date: 20111130
  Transmission Date: 20120403
  Serious: Yes (Hospitalization)
  Sender: FDA-Public Use
  Company Number: DE-CELGENEUS-062-50794-11111068

PATIENT
  Age: 67 Year
  Sex: Female
  Weight: 79 kg

DRUGS (4)
  1. VIDAZA [Suspect]
     Dosage: 138 MILLIGRAM
     Route: 058
     Dates: start: 20110908, end: 20111004
  2. CYTARABINE [Suspect]
     Dosage: 3640 MILLIGRAM/SQ. METER
     Route: 041
     Dates: start: 20110802
  3. VIDAZA [Suspect]
     Dosage: 138 MILLIGRAM
     Route: 058
     Dates: start: 20110803
  4. CYTARABINE [Suspect]
     Dosage: 3640 MILLIGRAM/SQ. METER
     Route: 041
     Dates: start: 20110902, end: 20111002

REACTIONS (3)
  - NEUTROPENIC SEPSIS [None]
  - ENTEROCOLITIS INFECTIOUS [None]
  - CARDIAC FAILURE [None]
